FAERS Safety Report 13345912 (Version 3)
Quarter: 2017Q1

REPORT INFORMATION
  Report Type: Report from Study
  Country: None (occurrence: AU)
  Receive Date: 20170317
  Receipt Date: 20170320
  Transmission Date: 20170428
  Serious: Yes (Hospitalization)
  Sender: FDA-Public Use
  Company Number: AU-ABBVIE-17P-008-1903880-00

PATIENT
  Age: 47 Year
  Sex: Female
  Weight: 89 kg

DRUGS (2)
  1. HUMIRA [Suspect]
     Active Substance: ADALIMUMAB
     Indication: CROHN^S DISEASE
  2. HUMIRA [Suspect]
     Active Substance: ADALIMUMAB
     Indication: CROHN^S DISEASE
     Route: 058
     Dates: start: 2012

REACTIONS (7)
  - Abdominal pain [Unknown]
  - Intestinal resection [Recovered/Resolved]
  - Ileal ulcer [Unknown]
  - Rectal haemorrhage [Unknown]
  - Small intestinal resection [Recovered/Resolved]
  - Diarrhoea [Unknown]
  - Drug level decreased [Unknown]

NARRATIVE: CASE EVENT DATE: 201603
